FAERS Safety Report 15261099 (Version 1)
Quarter: 2018Q3

REPORT INFORMATION
  Report Type: Report from Study
  Country: RO (occurrence: RO)
  Receive Date: 20180809
  Receipt Date: 20180809
  Transmission Date: 20181010
  Serious: Yes (Other)
  Sender: FDA-Public Use
  Company Number: RO-GILEAD-2018-0354037

PATIENT
  Age: 53 Year
  Sex: Male

DRUGS (5)
  1. LEDIPASVIR/SOFOSBUVIR [Suspect]
     Active Substance: LEDIPASVIR\SOFOSBUVIR
     Indication: HEPATIC CIRRHOSIS
     Dosage: 1 DF, QD
     Route: 048
     Dates: start: 20180516, end: 20180530
  2. URSOFALK [Concomitant]
     Active Substance: URSODIOL
  3. LEDIPASVIR/SOFOSBUVIR [Suspect]
     Active Substance: LEDIPASVIR\SOFOSBUVIR
     Indication: HEPATITIS C
     Dosage: 1 DF, QD
     Route: 048
     Dates: start: 20180619
  4. DIUREX                             /00022001/ [Concomitant]
  5. NORMIX [Concomitant]
     Active Substance: RIFAXIMIN

REACTIONS (4)
  - Coma [Recovered/Resolved]
  - Oesophageal varices haemorrhage [Recovered/Resolved]
  - Encephalopathy [Not Recovered/Not Resolved]
  - Varices oesophageal [Recovered/Resolved]

NARRATIVE: CASE EVENT DATE: 20180530
